FAERS Safety Report 13358909 (Version 2)
Quarter: 2017Q1

REPORT INFORMATION
  Report Type: Spontaneous
  Country: US (occurrence: US)
  Receive Date: 20170322
  Receipt Date: 20170330
  Transmission Date: 20170429
  Serious: No
  Sender: FDA-Public Use
  Company Number: US-BAYER-2017-052331

PATIENT
  Sex: Male

DRUGS (1)
  1. CLARITIN [Suspect]
     Active Substance: LORATADINE
     Indication: RHINORRHOEA
     Dosage: UNK
     Route: 065

REACTIONS (5)
  - Eye pruritus [None]
  - Throat irritation [None]
  - Nasal congestion [Unknown]
  - Rhinorrhoea [None]
  - Drug ineffective [Unknown]
